FAERS Safety Report 21306617 (Version 2)
Quarter: 2022Q3

REPORT INFORMATION
  Report Type: Spontaneous
  Country: FR (occurrence: FR)
  Receive Date: 20220908
  Receipt Date: 20220930
  Transmission Date: 20221027
  Serious: Yes (Hospitalization)
  Sender: FDA-Public Use
  Company Number: FR-JNJFOC-20220865726

PATIENT
  Sex: Female

DRUGS (6)
  1. SPRAVATO [Suspect]
     Active Substance: ESKETAMINE
     Indication: Product used for unknown indication
     Dates: start: 20220531, end: 20220531
  2. SPRAVATO [Suspect]
     Active Substance: ESKETAMINE
     Dates: start: 202206, end: 202206
  3. SPRAVATO [Suspect]
     Active Substance: ESKETAMINE
     Dates: start: 202207, end: 202207
  4. SPRAVATO [Suspect]
     Active Substance: ESKETAMINE
     Dates: start: 20220802, end: 20220802
  5. TERALITHE [Suspect]
     Active Substance: LITHIUM CARBONATE
     Indication: Product used for unknown indication
     Route: 065
  6. EFFEXOR [Suspect]
     Active Substance: VENLAFAXINE HYDROCHLORIDE
     Indication: Product used for unknown indication
     Route: 065

REACTIONS (3)
  - Intentional self-injury [Unknown]
  - Injury [Unknown]
  - Inappropriate schedule of product administration [Unknown]

NARRATIVE: CASE EVENT DATE: 20220808
